FAERS Safety Report 14404596 (Version 1)
Quarter: 2018Q1

REPORT INFORMATION
  Report Type: Report from Study
  Country: US (occurrence: US)
  Receive Date: 20180117
  Receipt Date: 20180117
  Transmission Date: 20180509
  Serious: Yes (Other)
  Sender: FDA-Public Use
  Company Number: US-ROCHE-2046063

PATIENT
  Sex: Male
  Weight: 78.09 kg

DRUGS (13)
  1. NUTROPIN AQ [Suspect]
     Active Substance: SOMATROPIN
     Route: 058
  2. ZOCOR [Concomitant]
     Active Substance: SIMVASTATIN
     Route: 065
  3. SYNTHROID [Concomitant]
     Active Substance: LEVOTHYROXINE SODIUM
     Route: 065
  4. SYNTHROID [Concomitant]
     Active Substance: LEVOTHYROXINE SODIUM
     Route: 048
  5. NUTROPIN AQ [Suspect]
     Active Substance: SOMATROPIN
     Indication: HYPOPITUITARISM
     Dosage: ONGOING: YES
     Route: 058
  6. NUTROPIN AQ [Suspect]
     Active Substance: SOMATROPIN
     Route: 058
  7. ASPIRIN. [Concomitant]
     Active Substance: ASPIRIN
     Route: 065
  8. NUTROPIN AQ [Suspect]
     Active Substance: SOMATROPIN
     Route: 058
  9. TRICOR [Concomitant]
     Active Substance: FENOFIBRATE
     Route: 065
  10. FENOFIBRATE. [Concomitant]
     Active Substance: FENOFIBRATE
     Route: 065
  11. SIMVASTATIN. [Concomitant]
     Active Substance: SIMVASTATIN
     Route: 065
  12. ANDROGEL [Concomitant]
     Active Substance: TESTOSTERONE
     Route: 065
  13. MULTIVITAL [Concomitant]
     Route: 065

REACTIONS (11)
  - Tremor [Unknown]
  - Visual impairment [Not Recovered/Not Resolved]
  - Glomerular filtration rate decreased [Unknown]
  - Blood testosterone free decreased [Unknown]
  - Insulin-like growth factor increased [Unknown]
  - Visual impairment [Unknown]
  - Blood glucose increased [Unknown]
  - Deafness unilateral [Not Recovered/Not Resolved]
  - Fatigue [Unknown]
  - Incorrect dose administered [Unknown]
  - Malaise [Unknown]
